FAERS Safety Report 21404038 (Version 1)
Quarter: 2022Q4

REPORT INFORMATION
  Report Type: Spontaneous
  Country: US (occurrence: None)
  Receive Date: 20221003
  Receipt Date: 20221003
  Transmission Date: 20230113
  Serious: Yes (Hospitalization, Disabling)
  Sender: FDA-Public Use
  Company Number: None

PATIENT
  Age: 22 Year
  Sex: Male
  Weight: 62.1 kg

DRUGS (5)
  1. ABILIFY [Suspect]
     Active Substance: ARIPIPRAZOLE
     Indication: Depression
     Dosage: OTHER QUANTITY : 1 TABLET(S);?
     Route: 048
     Dates: start: 20220708, end: 20220715
  2. LEXAPRO [Concomitant]
     Active Substance: ESCITALOPRAM OXALATE
  3. MIRTAZAPINE [Concomitant]
     Active Substance: MIRTAZAPINE
  4. iron supplement [Concomitant]
  5. multivitamin [Concomitant]

REACTIONS (6)
  - Dysphagia [None]
  - Dyspnoea [None]
  - Seizure [None]
  - Dystonia [None]
  - Oculogyric crisis [None]
  - Tardive dyskinesia [None]

NARRATIVE: CASE EVENT DATE: 20220718
